FAERS Safety Report 8801465 (Version 1)
Quarter: 2012Q4

REPORT INFORMATION
  Report Type: 
  Country: CA (occurrence: CA)
  Receive Date: 20120921
  Receipt Date: 20120921
  Transmission Date: 20130627
  Serious: Yes (Death, Hospitalization, Other)
  Sender: FDA-Public Use
  Company Number: CA-ROCHE-1128993

PATIENT
  Age: 55 Year
  Sex: Male

DRUGS (5)
  1. PEGASYS [Suspect]
     Indication: PRODUCT USED FOR UNKNOWN INDICATION
     Route: 058
  2. RIBAVIRIN [Suspect]
     Indication: PRODUCT USED FOR UNKNOWN INDICATION
     Route: 048
  3. VICTRELIS [Suspect]
     Indication: PRODUCT USED FOR UNKNOWN INDICATION
     Route: 048
  4. EPREX [Concomitant]
     Dosage: reporter as Eprex sterile solution
     Route: 042
  5. PREDNISONE [Concomitant]
     Route: 065

REACTIONS (9)
  - Anaemia [Fatal]
  - Cryoglobulinaemia [Fatal]
  - Myocardial infarction [Fatal]
  - Red blood cell abnormality [Fatal]
  - Vasculitis [Fatal]
  - Cardiac arrest [Fatal]
  - Deep vein thrombosis [Fatal]
  - Septic shock [Fatal]
  - Staphylococcal infection [Fatal]
